FAERS Safety Report 19809615 (Version 1)
Quarter: 2021Q3

REPORT INFORMATION
  Report Type: Spontaneous
  Country: US (occurrence: US)
  Receive Date: 20210904
  Receipt Date: 20210904
  Transmission Date: 20211014
  Serious: Yes (Hospitalization)
  Sender: FDA-Public Use
  Company Number: None

PATIENT
  Sex: Male
  Weight: 13.1 kg

DRUGS (1)
  1. CISPLATIN. [Suspect]
     Active Substance: CISPLATIN
     Dates: end: 20210828

REACTIONS (9)
  - Tumour haemorrhage [None]
  - Fluid overload [None]
  - Ascites [None]
  - Haemoglobin decreased [None]
  - Gastrointestinal disorder [None]
  - Tachycardia [None]
  - Respiratory failure [None]
  - Blood fibrinogen decreased [None]
  - Abdominal distension [None]

NARRATIVE: CASE EVENT DATE: 20210830
